FAERS Safety Report 18744588 (Version 1)
Quarter: 2021Q1

REPORT INFORMATION
  Report Type: Spontaneous
  Country: PT (occurrence: PT)
  Receive Date: 20210115
  Receipt Date: 20210115
  Transmission Date: 20210419
  Serious: Yes (Other)
  Sender: FDA-Public Use
  Company Number: PT-TEVA-2021-PT-1867993

PATIENT
  Age: 64 Year
  Sex: Male
  Weight: 98 kg

DRUGS (2)
  1. MYFENAX [Suspect]
     Active Substance: MYCOPHENOLATE MOFETIL
     Indication: AUTOIMMUNE DISORDER
     Route: 048
  2. DEFLAZACORT [Concomitant]
     Active Substance: DEFLAZACORT
     Indication: AUTOIMMUNE DISORDER
     Route: 048

REACTIONS (3)
  - Anaemia [Not Recovered/Not Resolved]
  - Intestinal haemorrhage [Not Recovered/Not Resolved]
  - Faeces discoloured [Not Recovered/Not Resolved]

NARRATIVE: CASE EVENT DATE: 20201224
